FAERS Safety Report 25906010 (Version 1)
Quarter: 2025Q4

REPORT INFORMATION
  Report Type: Spontaneous
  Country: US (occurrence: None)
  Receive Date: 20251009
  Receipt Date: 20251009
  Transmission Date: 20260118
  Serious: Yes (Death)
  Sender: FDA-CTU
  Company Number: None

PATIENT
  Age: 59 Year
  Sex: Male

DRUGS (1)
  1. LENALIDOMIDE [Suspect]
     Active Substance: LENALIDOMIDE
     Indication: Plasma cell myeloma
     Dosage: 5MG QD ORAL ?
     Route: 048
     Dates: start: 20230915, end: 20250930

REACTIONS (4)
  - Dyspnoea [None]
  - Acute kidney injury [None]
  - Chronic kidney disease [None]
  - General physical health deterioration [None]

NARRATIVE: CASE EVENT DATE: 20250930
